FAERS Safety Report 9916531 (Version 1)
Quarter: 2014Q1

REPORT INFORMATION
  Report Type: Spontaneous
  Country: FR (occurrence: None)
  Receive Date: 20140219
  Receipt Date: 20140219
  Transmission Date: 20141002
  Serious: Yes (Life-Threatening, Hospitalization)
  Sender: FDA-Public Use
  Company Number: SYM-2014-17258

PATIENT
  Age: 40 Year
  Sex: Male

DRUGS (3)
  1. FLAGYL [Suspect]
     Indication: ORAL INFECTION
     Dosage: ORAL
     Route: 048
     Dates: start: 20040214, end: 20040224
  2. PROFENID [Suspect]
     Indication: ORAL INFECTION
     Dosage: 200 MG, DAILY, ORAL
     Route: 048
     Dates: start: 20040214, end: 20140215
  3. AUGMENTIN [Suspect]
     Indication: ORAL INFECTION
     Dosage: 1 GM, 3 IN 1 D, ORAL
     Route: 048
     Dates: start: 20040214, end: 20040224

REACTIONS (2)
  - Cellulitis [None]
  - Condition aggravated [None]
